FAERS Safety Report 18410022 (Version 1)
Quarter: 2020Q4

REPORT INFORMATION
  Report Type: Spontaneous
  Country: US (occurrence: US)
  Receive Date: 20201021
  Receipt Date: 20201021
  Transmission Date: 20210114
  Serious: Yes (Hospitalization)
  Sender: FDA-Public Use
  Company Number: None

PATIENT
  Age: 79 Year
  Sex: Female

DRUGS (24)
  1. TOBRAMYCIN 300MG/5ML GEQ TOBI [Suspect]
     Active Substance: TOBRAMYCIN
     Indication: CHRONIC OBSTRUCTIVE PULMONARY DISEASE
     Route: 055
     Dates: start: 20200402
  2. IPRATROPIUM/SOL ALBUTER [Concomitant]
  3. ALBUTEROL NEB [Concomitant]
     Active Substance: ALBUTEROL
  4. INCRUSE ELLIPTA [Concomitant]
     Active Substance: UMECLIDINIUM BROMIDE
  5. VENTOLIN HFA [Concomitant]
     Active Substance: ALBUTEROL SULFATE
  6. DOXYCYCL HYC [Concomitant]
  7. OLMESA MEDOX [Concomitant]
  8. SERTRALINE [Concomitant]
     Active Substance: SERTRALINE HYDROCHLORIDE
  9. GABAPENTIN. [Concomitant]
     Active Substance: GABAPENTIN
  10. TRAMADOL HCL [Concomitant]
     Active Substance: TRAMADOL HYDROCHLORIDE
  11. ZOLPIDEM [Concomitant]
     Active Substance: ZOLPIDEM TARTRATE
  12. ADVAIR DISKU [Concomitant]
  13. BANOPHEN [Concomitant]
     Active Substance: DIPHENHYDRAMINE HYDROCHLORIDE
  14. LORATADINE. [Concomitant]
     Active Substance: LORATADINE
  15. MYRBETRIQ [Concomitant]
     Active Substance: MIRABEGRON
  16. PREDNISONE. [Concomitant]
     Active Substance: PREDNISONE
  17. AMOX/K CLAV [Concomitant]
     Active Substance: AMOXICILLIN\CLAVULANATE POTASSIUM
  18. AZITHROMYCIN ANHYDROUS. [Concomitant]
     Active Substance: AZITHROMYCIN ANHYDROUS
  19. SMZ/TMP DS [Concomitant]
     Active Substance: SULFAMETHOXAZOLE\TRIMETHOPRIM
  20. BISOPROL FUM [Concomitant]
     Active Substance: BISOPROLOL FUMARATE
  21. PAIN RELIEVER [Concomitant]
  22. ALBUTEROL AER [Concomitant]
     Active Substance: ALBUTEROL
  23. DIVALPROEX [Concomitant]
     Active Substance: DIVALPROEX SODIUM
  24. ROSUVASTATIN. [Concomitant]
     Active Substance: ROSUVASTATIN

REACTIONS (1)
  - Pneumonia [None]

NARRATIVE: CASE EVENT DATE: 20201002
